FAERS Safety Report 19984029 (Version 1)
Quarter: 2021Q4

REPORT INFORMATION
  Report Type: Spontaneous
  Country: US (occurrence: US)
  Receive Date: 20211022
  Receipt Date: 20211022
  Transmission Date: 20220303
  Serious: Yes (Disabling)
  Sender: FDA-Public Use
  Company Number: None

PATIENT
  Age: 80 Year
  Sex: Female
  Weight: 58.05 kg

DRUGS (6)
  1. EYLEA [Suspect]
     Active Substance: AFLIBERCEPT
     Indication: Neovascular age-related macular degeneration
     Route: 047
     Dates: start: 20210817, end: 20210817
  2. METOPROLOL [Concomitant]
     Active Substance: METOPROLOL
  3. EYE FORMULA OCULAR SUPPORT CAPSULE [Concomitant]
  4. FOLIC ACID [Concomitant]
     Active Substance: FOLIC ACID
  5. MAGNESIUM [Concomitant]
     Active Substance: MAGNESIUM
  6. CALCIUM [Concomitant]
     Active Substance: CALCIUM

REACTIONS (4)
  - Eye infection [None]
  - Eye operation [None]
  - Blindness unilateral [None]
  - Visual impairment [None]

NARRATIVE: CASE EVENT DATE: 20210819
